FAERS Safety Report 9723448 (Version 1)
Quarter: 2013Q4

REPORT INFORMATION
  Report Type: Spontaneous
  Country: IT (occurrence: IT)
  Receive Date: 20131202
  Receipt Date: 20131202
  Transmission Date: 20140711
  Serious: Yes (Hospitalization)
  Sender: FDA-Public Use
  Company Number: IT-PFIZER INC-2013341842

PATIENT
  Age: 64 Year
  Sex: Female

DRUGS (1)
  1. XANAX [Suspect]
     Dosage: 60 ML, TOTAL
     Route: 048
     Dates: start: 20131119, end: 20131119

REACTIONS (3)
  - Overdose [Recovering/Resolving]
  - Rhabdomyolysis [Recovering/Resolving]
  - Sopor [Recovering/Resolving]
